FAERS Safety Report 9393449 (Version 1)
Quarter: 2013Q3

REPORT INFORMATION
  Report Type: Spontaneous
  Country: FR (occurrence: FR)
  Receive Date: 20130710
  Receipt Date: 20130710
  Transmission Date: 20140515
  Serious: Yes (Hospitalization, Other)
  Sender: FDA-Public Use
  Company Number: FR-PFIZER INC-2013001366

PATIENT
  Age: 80 Year
  Sex: Male

DRUGS (5)
  1. CORDARONE [Suspect]
     Indication: ATRIAL FIBRILLATION
     Dosage: 1 TABLET, DAILY
     Route: 048
     Dates: start: 201211, end: 20121210
  2. SECTRAL [Suspect]
     Dosage: UNK
     Route: 048
     Dates: end: 20121210
  3. PREVISCAN [Suspect]
     Indication: ATRIAL FIBRILLATION
     Dosage: UNK
     Route: 048
     Dates: start: 201211, end: 20121210
  4. HEXAQUINE [Suspect]
     Dosage: 1 TABLET, DAILY
     Route: 048
     Dates: start: 201201, end: 20121210
  5. TAREG [Suspect]
     Dosage: UNK
     Route: 048
     Dates: end: 20121210

REACTIONS (3)
  - Liver injury [Recovered/Resolved]
  - Cholangitis [Unknown]
  - Sepsis [Unknown]
